FAERS Safety Report 12658537 (Version 1)
Quarter: 2016Q3

REPORT INFORMATION
  Report Type: Spontaneous
  Country: US (occurrence: US)
  Receive Date: 20160817
  Receipt Date: 20160817
  Transmission Date: 20161109
  Serious: No
  Sender: FDA-Public Use
  Company Number: US-BAYER-2016-159590

PATIENT
  Age: 84 Year
  Sex: Female
  Weight: 62.13 kg

DRUGS (5)
  1. NYSTATIN. [Concomitant]
     Active Substance: NYSTATIN
     Dosage: UNK
     Dates: start: 20160812
  2. CLARITIN [Suspect]
     Active Substance: LORATADINE
     Indication: SINUS DISORDER
  3. CLARITIN [Suspect]
     Active Substance: LORATADINE
     Indication: SEASONAL ALLERGY
     Dosage: 1 DF, QD
     Route: 048
     Dates: start: 20160808, end: 20160815
  4. CLARITIN [Suspect]
     Active Substance: LORATADINE
     Indication: OROPHARYNGEAL PAIN
  5. CLARITIN [Suspect]
     Active Substance: LORATADINE
     Indication: INCREASED UPPER AIRWAY SECRETION

REACTIONS (2)
  - Eye pain [Not Recovered/Not Resolved]
  - Eye swelling [Not Recovered/Not Resolved]

NARRATIVE: CASE EVENT DATE: 20160808
